FAERS Safety Report 10187223 (Version 1)
Quarter: 2014Q2

REPORT INFORMATION
  Report Type: Spontaneous
  Country: US (occurrence: None)
  Receive Date: 20140520
  Receipt Date: 20140520
  Transmission Date: 20141212
  Serious: Yes (Other)
  Sender: FDA-Public Use
  Company Number: HA14-169-AE

PATIENT
  Age: 73 Year
  Sex: Female
  Weight: 63.5 kg

DRUGS (13)
  1. GABAPENTIN [Suspect]
     Indication: POST HERPETIC NEURALGIA
     Route: 048
     Dates: start: 201401
  2. GLIPIZIDE [Concomitant]
  3. CLOPIDOGREL [Concomitant]
  4. FENOFIBRATE [Concomitant]
  5. FUROSEMIDE [Concomitant]
  6. LEVOTHYROXINE [Concomitant]
  7. HYDROCHLOROTHIAZIDE [Concomitant]
  8. LISINOIPRIL [Concomitant]
  9. INSULIN GLARGINE (LANTUS) [Concomitant]
  10. OMEPRAZOLE [Concomitant]
  11. BUTALBITAL/ACETAMINOPHEN/CAFFEINE [Concomitant]
  12. NAPROXEN [Concomitant]
  13. PREGABALIN (LYRICA) [Concomitant]

REACTIONS (11)
  - Drug ineffective [None]
  - Pain in extremity [None]
  - Hypoaesthesia [None]
  - Muscle spasms [None]
  - Paraesthesia [None]
  - Dry skin [None]
  - Gait disturbance [None]
  - Blood cholesterol increased [None]
  - Blood triglycerides increased [None]
  - Blood count abnormal [None]
  - Hot flush [None]
